FAERS Safety Report 7795346-3 (Version None)
Quarter: 2011Q4

REPORT INFORMATION
  Report Type: 
  Country: None (occurrence: None)
  Receive Date: 20111004
  Receipt Date: 20110921
  Transmission Date: 20120403
  Serious: Yes (Hospitalization)
  Sender: FDA-Public Use
  Company Number: FR-CELGENEUS-056-FK228-10061657

PATIENT
  Sex: Female
  Weight: 96 kg

DRUGS (37)
  1. PRIMPERAN TAB [Concomitant]
     Route: 048
     Dates: start: 20081009
  2. NEURONTIN [Concomitant]
     Dosage: 300 MILLIGRAM
     Route: 048
     Dates: start: 20081120, end: 20081122
  3. EMEND [Concomitant]
     Route: 048
     Dates: start: 20090430, end: 20090507
  4. MAGNESIUM SULFATE [Concomitant]
     Dosage: 1 AMP
     Route: 041
     Dates: start: 20081017, end: 20090213
  5. MAGNESIUM SULFATE [Concomitant]
     Dosage: 1 MILLIGRAM
     Route: 041
     Dates: start: 20090227, end: 20100422
  6. MAGNESIUM 2 [Concomitant]
     Dosage: 4 AMP
     Route: 041
     Dates: start: 20090605
  7. PNEUMOCOCCUS VACCINE [Concomitant]
     Route: 030
     Dates: start: 20091001, end: 20091001
  8. VENTOLIN [Concomitant]
     Route: 048
     Dates: start: 20091112, end: 20091101
  9. ZOFRAN [Concomitant]
     Dosage: 8 MILLIGRAM
     Route: 041
     Dates: start: 20081010
  10. ZOFRAN [Concomitant]
     Dosage: 8 MILLIGRAM
     Route: 054
     Dates: start: 20100527, end: 20100530
  11. VOLTARINE [Concomitant]
     Indication: PERIARTHRITIS
     Dosage: 400 MILLIGRAM
     Route: 048
     Dates: start: 20091116, end: 20091101
  12. POTASSIUM [Concomitant]
     Dosage: 1 AMP
     Route: 041
     Dates: start: 20081017, end: 20081017
  13. ZOFRAN [Concomitant]
     Dosage: 8 MILLIGRAM
     Route: 054
     Dates: start: 20100520, end: 20100523
  14. ACETAMINOPHEN [Concomitant]
     Dosage: 1 GRAM
     Route: 048
     Dates: start: 20090601
  15. ARNICA [Concomitant]
     Route: 048
     Dates: start: 20090821
  16. FLU VACCINE [Concomitant]
     Route: 030
     Dates: start: 20091001, end: 20091001
  17. ZOFRAN [Concomitant]
     Dosage: 8 MILLIGRAM
     Route: 048
     Dates: start: 20081010
  18. XOLAAM [Concomitant]
     Dosage: 3 TABLESPOON
     Route: 048
     Dates: start: 20090306
  19. NEURONTIN [Concomitant]
     Dosage: 300 MILLIGRAM
     Route: 048
     Dates: start: 20081114, end: 20081116
  20. NEURONTIN [Concomitant]
     Dosage: 300 MILLIGRAM
     Route: 048
     Dates: start: 20081117, end: 20081119
  21. TRAUSIPEGIC [Concomitant]
     Dosage: 1 SACHET
     Route: 048
     Dates: start: 20090306
  22. LANSOYL [Concomitant]
     Dosage: 1 SACHET
     Route: 048
     Dates: start: 20090306
  23. MYOLASTAN [Concomitant]
     Route: 048
     Dates: start: 20091201
  24. DIAUTALVIC [Concomitant]
     Route: 048
     Dates: start: 20081101
  25. ROMIDEPSIN [Suspect]
     Indication: PERIPHERAL T-CELL LYMPHOMA UNSPECIFIED
     Dosage: 14 MILLIGRAM/SQ. METER
     Route: 041
     Dates: start: 20081009
  26. PRIMPERAN TAB [Concomitant]
     Route: 041
     Dates: start: 20090626, end: 20090901
  27. DUPHALAC [Concomitant]
     Dosage: 1 SACHET
     Route: 048
     Dates: start: 20081103
  28. TRAMADOL HCL [Concomitant]
     Dosage: 2 TABLET
     Route: 048
     Dates: start: 20081114
  29. PANTOPRAZOLE SODIUM [Concomitant]
     Dosage: 40 MILLIGRAM
     Route: 048
     Dates: start: 20090306
  30. MAGNESIUM 2 [Concomitant]
     Dosage: 2 AMP
     Route: 041
     Dates: start: 20090515, end: 20090530
  31. LEVOTHYROXE [Concomitant]
     Indication: HYPOTHYROIDISM
     Dosage: 150 MILLIGRAM
     Route: 048
     Dates: start: 20020101
  32. ACETAMINOPHEN [Concomitant]
     Dosage: 1 GRAM
     Route: 048
     Dates: start: 20090626
  33. ACETAMINOPHEN [Concomitant]
     Route: 048
     Dates: start: 20091001, end: 20091001
  34. STREPSIL [Concomitant]
     Route: 048
     Dates: start: 20091001, end: 20091001
  35. MAGNESIUM B6 [Concomitant]
     Route: 048
     Dates: start: 20091230
  36. ANTI-MYCOTIC [Concomitant]
     Dosage: APP
     Route: 061
     Dates: start: 20100401, end: 20100401
  37. MUSCLE RELAXANT [Concomitant]
     Route: 065

REACTIONS (3)
  - TENDON DISORDER [None]
  - PERIPHERAL SENSORY NEUROPATHY [None]
  - PERIARTHRITIS [None]
